FAERS Safety Report 6097303-4 (Version None)
Quarter: 2009Q1

REPORT INFORMATION
  Report Type: 
  Country: None (occurrence: None)
  Receive Date: 20090226
  Receipt Date: 20090226
  Transmission Date: 20090719
  Serious: Yes (Hospitalization)
  Sender: FDA-Public Use
  Company Number: None

PATIENT
  Age: 32 Year
  Sex: Male
  Weight: 106 kg

DRUGS (2)
  1. DOCETAXEL [Suspect]
     Indication: PANCREATIC CARCINOMA RESECTABLE
     Dosage: 80MG Q2WKS, 1WK OFF IV
     Route: 042
     Dates: start: 20090212, end: 20090219
  2. GEMCITABINE HCL [Concomitant]

REACTIONS (2)
  - DIARRHOEA [None]
  - PYREXIA [None]
